FAERS Safety Report 4297187-0 (Version None)
Quarter: 2004Q1

REPORT INFORMATION
  Report Type: 
  Country: None (occurrence: None)
  Receive Date: 20040218
  Receipt Date: 20040109
  Transmission Date: 20041129
  Serious: Yes (Hospitalization)
  Sender: FDA-Public Use
  Company Number: GB-BRISTOL-MYERS SQUIBB COMPANY-12485595

PATIENT
  Age: 54 Year
  Sex: Female
  Weight: 104 kg

DRUGS (5)
  1. APROVEL TABS [Suspect]
     Indication: HYPERTENSION
     Dosage: BEGAN APROVEL 150MG DAILY ON 09-OCT-03,THEN INCREASED TO 225MG DAILY ON 08-DEC-03.
     Route: 048
     Dates: start: 20031009, end: 20031226
  2. ARIMIDEX [Concomitant]
     Indication: BREAST CANCER
     Dosage: ON FOR YEARS
     Route: 048
     Dates: start: 19970101
  3. LUSTRAL [Concomitant]
     Indication: DEPRESSION
     Route: 048
     Dates: start: 20000101
  4. BENDROFLUAZIDE [Concomitant]
     Indication: HYPERTENSION
     Dosage: ON FOR YEARS, STOPPED, THEN RESTARTED
     Route: 048
  5. IMODIUM [Concomitant]
     Indication: POST PROCEDURAL DIARRHOEA
     Dosage: ON FOR YEARS

REACTIONS (5)
  - CHEST PAIN [None]
  - DRUG HYPERSENSITIVITY [None]
  - HYPERSENSITIVITY [None]
  - HYPOTENSION [None]
  - RASH PRURITIC [None]
